FAERS Safety Report 5862343-4 (Version None)
Quarter: 2008Q3

REPORT INFORMATION
  Report Type: 
  Country: None (occurrence: None)
  Receive Date: 20080828
  Receipt Date: 20080826
  Transmission Date: 20090109
  Serious: Yes (Hospitalization)
  Sender: FDA-Public Use
  Company Number: JP-BRISTOL-MYERS SQUIBB COMPANY-14315170

PATIENT
  Age: 79 Year
  Sex: Male

DRUGS (3)
  1. GATIFLOXACIN [Suspect]
     Indication: BRONCHITIS
     Route: 048
     Dates: start: 20080814, end: 20080815
  2. MUCODYNE [Concomitant]
     Route: 048
     Dates: start: 20080814, end: 20080815
  3. IBUPROFEN [Concomitant]
     Route: 048
     Dates: start: 20080814, end: 20080815

REACTIONS (1)
  - HYPOGLYCAEMIA [None]
